FAERS Safety Report 19269455 (Version 1)
Quarter: 2021Q2

REPORT INFORMATION
  Report Type: Spontaneous
  Country: FR (occurrence: FR)
  Receive Date: 20210518
  Receipt Date: 20210518
  Transmission Date: 20210717
  Serious: Yes (Hospitalization)
  Sender: FDA-Public Use
  Company Number: FR-TEVA-2021-FR-1911926

PATIENT
  Age: 65 Year
  Sex: Female
  Weight: 41 kg

DRUGS (12)
  1. CISPLATINE [Suspect]
     Active Substance: CISPLATIN
     Indication: SQUAMOUS CELL CARCINOMA
     Dosage: 54 MG
     Route: 041
     Dates: start: 20210330, end: 20210330
  2. VALSARTAN. [Concomitant]
     Active Substance: VALSARTAN
  3. OXYCODONE [Concomitant]
     Active Substance: OXYCODONE
  4. LEVOFOLINATE [Suspect]
     Active Substance: LEVOLEUCOVORIN CALCIUM
     Indication: SQUAMOUS CELL CARCINOMA
     Dosage: 270 MG
     Route: 041
     Dates: start: 20210330, end: 20210330
  5. SALICYLATE [Concomitant]
     Active Substance: SALICYLIC ACID
  6. PARACETAMOL [Concomitant]
     Active Substance: ACETAMINOPHEN
  7. SOLU?MEDROL [Suspect]
     Active Substance: METHYLPREDNISOLONE SODIUM SUCCINATE
     Indication: SQUAMOUS CELL CARCINOMA
     Dosage: 80 MG
     Route: 041
     Dates: start: 20210330, end: 20210330
  8. DOCETAXEL. [Suspect]
     Active Substance: DOCETAXEL
     Indication: SQUAMOUS CELL CARCINOMA
     Dosage: 54 MG
     Route: 041
     Dates: start: 20210330, end: 20210330
  9. FLUOROURACILE [Suspect]
     Active Substance: FLUOROURACIL
     Indication: SQUAMOUS CELL CARCINOMA
     Dosage: 3250 MG
     Route: 041
     Dates: start: 20210330, end: 20210330
  10. AKYNZEO [Suspect]
     Active Substance: NETUPITANT\PALONOSETRON HYDROCHLORIDE
     Indication: SQUAMOUS CELL CARCINOMA
     Dosage: 300 MG
     Route: 048
     Dates: start: 20210330, end: 20210330
  11. MOVICOL [Concomitant]
     Active Substance: POLYETHYLENE GLYCOL 3350\POTASSIUM CHLORIDE\SODIUM BICARBONATE\SODIUM CHLORIDE
  12. NEBIVOLOL. [Concomitant]
     Active Substance: NEBIVOLOL

REACTIONS (1)
  - Renal tubular disorder [Not Recovered/Not Resolved]

NARRATIVE: CASE EVENT DATE: 20210409
